FAERS Safety Report 5207916-7 (Version None)
Quarter: 2007Q1

REPORT INFORMATION
  Report Type: 
  Country: None (occurrence: None)
  Receive Date: 20070115
  Receipt Date: 20070104
  Transmission Date: 20070707
  Serious: Yes (Hospitalization)
  Sender: FDA-Public Use
  Company Number: JP-JNJFOC-20061206459

PATIENT
  Sex: Male

DRUGS (12)
  1. ITRIZOLE [Suspect]
     Route: 041
  2. ITRIZOLE [Suspect]
     Indication: ASPERGILLOSIS
     Route: 041
  3. MYSLEE [Interacting]
     Indication: INSOMNIA
     Route: 048
     Dates: start: 20061017, end: 20061220
  4. LEVOFLOXACIN [Concomitant]
     Indication: ATYPICAL MYCOBACTERIAL INFECTION
     Route: 048
  5. CLARITHROMYCIN [Concomitant]
     Indication: ATYPICAL MYCOBACTERIAL INFECTION
     Route: 048
  6. PREDONINE [Concomitant]
     Indication: PNEUMONIA
     Route: 048
  7. MINOCYCLINE HCL [Concomitant]
     Indication: LUNG INFECTION
     Route: 048
  8. TAKEPRON [Concomitant]
     Indication: REFLUX OESOPHAGITIS
     Route: 048
  9. BACTRIM [Concomitant]
     Indication: PNEUMOCYSTIS JIROVECI INFECTION
     Route: 048
  10. CYANOCOBALAMIN [Concomitant]
     Indication: NEUROPATHY PERIPHERAL
     Route: 048
  11. CODEINE PHOSPHATE [Concomitant]
     Indication: BRONCHITIS CHRONIC
     Route: 048
  12. VORICONAZOLE [Concomitant]
     Route: 065

REACTIONS (14)
  - ALANINE AMINOTRANSFERASE INCREASED [None]
  - ASPARTATE AMINOTRANSFERASE INCREASED [None]
  - BLOOD ALKALINE PHOSPHATASE INCREASED [None]
  - DRUG INTERACTION [None]
  - HALLUCINATION, AUDITORY [None]
  - HEPATIC FUNCTION ABNORMAL [None]
  - ILLUSION [None]
  - MALAISE [None]
  - MOVEMENT DISORDER [None]
  - NEUROPATHY PERIPHERAL [None]
  - PAIN [None]
  - PARAESTHESIA [None]
  - PYREXIA [None]
  - SOMNOLENCE [None]
